FAERS Safety Report 6213430-2 (Version None)
Quarter: 2009Q2

REPORT INFORMATION
  Report Type: 
  Country: None (occurrence: None)
  Receive Date: 20090601
  Receipt Date: 20090515
  Transmission Date: 20091009
  Serious: Yes (Death, Hospitalization, Other)
  Sender: FDA-Public Use
  Company Number: A-CH2009-24654

PATIENT
  Age: 75 Year
  Sex: Female

DRUGS (2)
  1. TRACLEER [Suspect]
     Indication: SKIN ULCER
     Dosage: ORAL
     Route: 048
     Dates: start: 20090301
  2. ILOMEDINE [Concomitant]

REACTIONS (18)
  - ACUTE RESPIRATORY FAILURE [None]
  - ANAESTHETIC COMPLICATION [None]
  - BLOOD ELECTROLYTES ABNORMAL [None]
  - CARDIAC FAILURE [None]
  - CONFUSIONAL STATE [None]
  - DISEASE PROGRESSION [None]
  - ELECTROLYTE DEPLETION [None]
  - FALL [None]
  - FRACTURE [None]
  - HEPATIC CONGESTION [None]
  - HEPATIC FAILURE [None]
  - HYPOVOLAEMIA [None]
  - INFECTION [None]
  - PNEUMONIA [None]
  - PROTHROMBIN LEVEL DECREASED [None]
  - RIGHT VENTRICULAR FAILURE [None]
  - SCLERODERMA [None]
  - UROGENITAL INFECTION BACTERIAL [None]
